FAERS Safety Report 4554423-0 (Version None)
Quarter: 2005Q1

REPORT INFORMATION
  Report Type: 
  Country: None (occurrence: None)
  Receive Date: 20050118
  Receipt Date: 20050112
  Transmission Date: 20050727
  Serious: Yes (Hospitalization)
  Sender: FDA-Public Use
  Company Number: PHBS2005ES00739

PATIENT
  Age: 82 Year
  Sex: Male

DRUGS (6)
  1. TOFRANIL [Suspect]
     Indication: DEPRESSION
     Dosage: 2 MG/D
     Route: 048
     Dates: start: 20040601, end: 20041201
  2. IDAPTAN [Suspect]
     Indication: MYOCARDIAL ISCHAEMIA
     Dosage: 60 MG/DAY
     Dates: start: 20031101, end: 20041113
  3. ADIRO [Concomitant]
  4. CLONAZEPAM [Concomitant]
  5. GLICLAZIDE [Concomitant]
  6. DABONAL [Concomitant]

REACTIONS (3)
  - CEREBRAL ATROPHY [None]
  - DRUG INTERACTION [None]
  - EXTRAPYRAMIDAL DISORDER [None]
